FAERS Safety Report 20530391 (Version 9)
Quarter: 2025Q4

REPORT INFORMATION
  Report Type: Report from Study
  Country: CA (occurrence: CA)
  Receive Date: 20220301
  Receipt Date: 20251008
  Transmission Date: 20260118
  Serious: Yes (Hospitalization, Other)
  Sender: CELLTRION
  Company Number: CA-CELLTRION INC.-2022CA002141

PATIENT

DRUGS (29)
  1. RITUXIMAB [Suspect]
     Active Substance: RITUXIMAB
     Indication: Rheumatoid arthritis
     Dosage: 1000 MILLIGRAM
     Route: 042
  2. ACTEMRA [Suspect]
     Active Substance: TOCILIZUMAB
     Indication: Rheumatoid arthritis
     Dosage: 162 MG, 1 EVERY 2 WEEKS
     Route: 058
  3. ACTEMRA [Suspect]
     Active Substance: TOCILIZUMAB
     Indication: Giant cell arteritis
     Dosage: 162.0 MILLIGRAM
     Route: 058
  4. ACTEMRA [Suspect]
     Active Substance: TOCILIZUMAB
     Indication: Rheumatoid arthritis
     Route: 065
  5. ACTEMRA [Suspect]
     Active Substance: TOCILIZUMAB
     Indication: Giant cell arteritis
  6. ELASOMERAN [Suspect]
     Active Substance: ELASOMERAN
     Indication: Product used for unknown indication
     Dosage: (MRNA-1273 SARS-COV-2)
     Route: 065
  7. NITROFURANTOIN [Suspect]
     Active Substance: NITROFURANTOIN
     Indication: Product used for unknown indication
     Route: 065
  8. PREDNISONE [Suspect]
     Active Substance: PREDNISONE
     Indication: Product used for unknown indication
     Dosage: 3 MILLIGRAM, 1 EVERY 1 DAYS
     Route: 065
  9. PREDNISONE [Suspect]
     Active Substance: PREDNISONE
     Dosage: 2.5 MILLIGRAM, EVERY 1 DAY
     Route: 065
  10. PREDNISONE [Suspect]
     Active Substance: PREDNISONE
     Indication: Product used for unknown indication
     Dosage: 2.5 MILLIGRAM, 1 EVERY 1 DAYS
     Route: 065
  11. PREDNISONE [Suspect]
     Active Substance: PREDNISONE
     Dosage: 5.0 MILLIGRAM, EVERY 1 DAYS
     Route: 065
  12. PREDNISONE [Suspect]
     Active Substance: PREDNISONE
     Dosage: 3.0 MILLIGRAM, EVERY 1 DAYS
     Route: 065
  13. SPIKEVAX [Suspect]
     Active Substance: CX-046684
     Indication: Product used for unknown indication
     Route: 065
  14. ASPIRIN [Concomitant]
     Active Substance: ASPIRIN
     Dosage: 81 MILLIGRAM
     Route: 065
  15. ARTHROTEC [Concomitant]
     Active Substance: DICLOFENAC SODIUM\MISOPROSTOL
     Dosage: 50 MILLIGRAM
     Route: 065
  16. FELODIPINE [Concomitant]
     Active Substance: FELODIPINE
     Dosage: 2.5 MILLIGRAM
     Route: 048
  17. FOLIC ACID [Concomitant]
     Active Substance: FOLIC ACID
  18. GLUCOSAMINE [Concomitant]
     Active Substance: GLUCOSAMINE
  19. LYRICA [Concomitant]
     Active Substance: PREGABALIN
     Dosage: 75 MILLIGRAM
     Route: 065
  20. PANTOPRAZOLE [Concomitant]
     Active Substance: PANTOPRAZOLE
  21. RISEDRONATE SODIUM [Concomitant]
     Active Substance: RISEDRONATE SODIUM
     Dosage: 135 MILLIGRAM
     Route: 065
  22. ROSUVASTATIN CALCIUM [Concomitant]
     Active Substance: ROSUVASTATIN CALCIUM
     Dosage: 10 MILLIGRAM
     Route: 065
  23. SENOKOT [Concomitant]
     Active Substance: SENNOSIDES
  24. SYNTHROID [Concomitant]
     Active Substance: LEVOTHYROXINE SODIUM
     Route: 065
  25. TELMISARTAN [Concomitant]
     Active Substance: TELMISARTAN
     Dosage: 40 MILLIGRAM
     Route: 048
  26. VALSARTAN [Concomitant]
     Active Substance: VALSARTAN
  27. PREDNISONE [Concomitant]
     Active Substance: PREDNISONE
     Dosage: 5.0 MILLIGRAM, EVERY 1 DAYS
     Route: 065
  28. PREDNISONE [Concomitant]
     Active Substance: PREDNISONE
     Dosage: 3.0 MILLIGRAM, EVERY 1 DAYS
     Route: 065
  29. PREDNISONE [Concomitant]
     Active Substance: PREDNISONE
     Dosage: 2.5 MILLIGRAM, EVERY 1 DAYS
     Route: 065

REACTIONS (23)
  - Hip fracture [Recovering/Resolving]
  - Hip arthroplasty [Recovering/Resolving]
  - Myocardial ischaemia [Recovering/Resolving]
  - Osteoporosis [Recovering/Resolving]
  - Pericarditis [Recovering/Resolving]
  - Peripheral vascular disorder [Recovering/Resolving]
  - Productive cough [Recovering/Resolving]
  - Pulmonary embolism [Recovering/Resolving]
  - Spinal decompression [Recovering/Resolving]
  - Occipital lobe stroke [Recovering/Resolving]
  - Cerebrovascular accident [Unknown]
  - Fall [Recovering/Resolving]
  - Joint swelling [Recovering/Resolving]
  - Oedema peripheral [Recovering/Resolving]
  - Pain [Recovering/Resolving]
  - Dyspnoea [Recovering/Resolving]
  - Cardiac failure congestive [Recovering/Resolving]
  - Osteoarthritis [Recovering/Resolving]
  - Drug hypersensitivity [Recovering/Resolving]
  - Cardiac failure [Recovering/Resolving]
  - Cystitis [Recovering/Resolving]
  - Urinary tract infection [Recovering/Resolving]
  - Drug ineffective [Recovering/Resolving]
